FAERS Safety Report 8437269-2 (Version None)
Quarter: 2012Q2

REPORT INFORMATION
  Report Type: 
  Country: None (occurrence: None)
  Receive Date: 20120614
  Receipt Date: 20120302
  Transmission Date: 20120825
  Serious: No
  Sender: FDA-Public Use
  Company Number: US-AMGEN-USASP2011024721

PATIENT
  Age: 81 Year
  Sex: Female
  Weight: 45.125 kg

DRUGS (5)
  1. CALCIUM [Concomitant]
  2. EVISTA [Concomitant]
     Dosage: UNK
     Dates: start: 20030101
  3. AMLODIPINE [Concomitant]
     Dosage: UNK
     Dates: start: 20100304
  4. PROLIA [Suspect]
     Indication: OSTEOPOROSIS POSTMENOPAUSAL
     Dosage: 60 MG, Q6MO
     Route: 058
     Dates: start: 20110401, end: 20110501
  5. ACTONEL [Concomitant]
     Dosage: UNK
     Dates: start: 20091201, end: 20110401

REACTIONS (1)
  - RASH [None]
